FAERS Safety Report 18645368 (Version 5)
Quarter: 2024Q2

REPORT INFORMATION
  Report Type: Spontaneous
  Country: US (occurrence: US)
  Receive Date: 20201221
  Receipt Date: 20240620
  Transmission Date: 20240715
  Serious: Yes (Hospitalization, Other)
  Sender: FDA-Public Use
  Company Number: US-PFIZER INC-2020500127

PATIENT
  Age: 78 Year
  Sex: Female
  Weight: 55.34 kg

DRUGS (1)
  1. XELJANZ [Suspect]
     Active Substance: TOFACITINIB CITRATE
     Indication: Rheumatoid arthritis
     Dosage: 5 MG, 2X/DAY (5MG, TABLET, BY MOUTH, TWICE DAILY (ONE IN THE MORNING, ONE AT NIGHT))
     Route: 048

REACTIONS (6)
  - Pneumonia [Unknown]
  - Insomnia [Not Recovered/Not Resolved]
  - Memory impairment [Unknown]
  - Sleep disorder [Not Recovered/Not Resolved]
  - Therapeutic response unexpected [Unknown]
  - Product dose omission issue [Unknown]
